FAERS Safety Report 22524695 (Version 1)
Quarter: 2023Q2

REPORT INFORMATION
  Report Type: Spontaneous
  Country: US (occurrence: US)
  Receive Date: 20230606
  Receipt Date: 20230606
  Transmission Date: 20230722
  Serious: Yes (Other)
  Sender: FDA-Public Use
  Company Number: US-STRIDES ARCOLAB LIMITED-2023SP008016

PATIENT

DRUGS (4)
  1. RANITIDINE [Suspect]
     Active Substance: RANITIDINE
     Indication: Product used for unknown indication
     Dosage: UNK, RANITIDINE (OVER THE COUNTER)
     Route: 065
     Dates: start: 201101, end: 202001
  2. RANITIDINE [Suspect]
     Active Substance: RANITIDINE
     Dosage: UNK, ZANTAC (OVER THE COUNTER)
     Route: 065
     Dates: start: 201101, end: 202001
  3. RANITIDINE [Suspect]
     Active Substance: RANITIDINE
     Dosage: UNK, RANITIDINE (BY PRESCRIPTION)
     Route: 065
     Dates: start: 201101, end: 202001
  4. RANITIDINE [Suspect]
     Active Substance: RANITIDINE
     Dosage: UNK, ZANTAC (BY PRESCRIPTION)
     Route: 065
     Dates: start: 201101, end: 202001

REACTIONS (1)
  - Bladder cancer [Unknown]

NARRATIVE: CASE EVENT DATE: 20211001
